FAERS Safety Report 9296206 (Version 2)
Quarter: 2013Q2

REPORT INFORMATION
  Report Type: Spontaneous
  Country: BR (occurrence: BR)
  Receive Date: 20130517
  Receipt Date: 20130529
  Transmission Date: 20140414
  Serious: Yes (Other)
  Sender: FDA-Public Use
  Company Number: BR-ASTRAZENECA-2013SE32565

PATIENT
  Age: 51 Year
  Sex: Male
  Weight: 80 kg

DRUGS (4)
  1. CRESTOR [Suspect]
     Indication: HYPERTRIGLYCERIDAEMIA
     Route: 048
     Dates: start: 2011, end: 201301
  2. CRESTOR [Suspect]
     Indication: HYPERTRIGLYCERIDAEMIA
     Route: 048
  3. BEZAFIBRATE [Suspect]
     Route: 065
     Dates: end: 201301
  4. ASA PEDIATRIC [Concomitant]
     Dosage: DAILY
     Dates: start: 2011

REACTIONS (1)
  - Rhabdomyolysis [Unknown]
